FAERS Safety Report 20720135 (Version 2)
Quarter: 2022Q3

REPORT INFORMATION
  Report Type: Spontaneous
  Country: US (occurrence: US)
  Receive Date: 20220418
  Receipt Date: 20220929
  Transmission Date: 20221027
  Serious: Yes (Other)
  Sender: FDA-Public Use
  Company Number: US-PFIZER INC-202200531215

PATIENT
  Age: 69 Year
  Sex: Male
  Weight: 79.38 kg

DRUGS (10)
  1. AMINOPHYLLINE [Suspect]
     Active Substance: AMINOPHYLLINE
     Indication: Heart rate decreased
     Dosage: 125 MG
     Dates: start: 20220225, end: 20220225
  2. AMINOPHYLLINE [Suspect]
     Active Substance: AMINOPHYLLINE
     Indication: Nausea
  3. LEXISCAN [Suspect]
     Active Substance: REGADENOSON
     Indication: Heart rate decreased
     Dosage: UNK
     Dates: start: 20220225, end: 20220225
  4. REGADENOSON [Suspect]
     Active Substance: REGADENOSON
     Dosage: 0.08 MG/ML, SINGLE
     Route: 042
     Dates: start: 20220225, end: 20220225
  5. LEVOTHYROXINE SODIUM [Concomitant]
     Active Substance: LEVOTHYROXINE SODIUM
     Dosage: UNK
  6. OMEPRAZOLE [Concomitant]
     Active Substance: OMEPRAZOLE
     Dosage: 40 MG
  7. WELLBUTRIN [Concomitant]
     Active Substance: BUPROPION HYDROCHLORIDE
     Dosage: 200 MG
  8. VIIBRYD [Concomitant]
     Active Substance: VILAZODONE HYDROCHLORIDE
     Dosage: 40 MG
     Dates: start: 202005
  9. VITAMIN D3 [Concomitant]
     Active Substance: CHOLECALCIFEROL
     Dosage: 2000 IU
  10. VITAMIN B COMPLEX [Concomitant]
     Active Substance: CYANOCOBALAMIN\DEXPANTHENOL\NIACINAMIDE\PYRIDOXINE HYDROCHLORIDE\RIBOFLAVIN 5^-PHOSPHATE SODIUM\THIA
     Dosage: UNK

REACTIONS (10)
  - Loss of consciousness [Unknown]
  - Unresponsive to stimuli [Recovered/Resolved]
  - Nodal rhythm [Recovered/Resolved]
  - Blood glucose decreased [Recovered/Resolved]
  - Nausea [Recovered/Resolved]
  - Peripheral coldness [Recovered/Resolved]
  - Hypotension [Recovered/Resolved]
  - Ventricular extrasystoles [Recovered/Resolved]
  - Poor peripheral circulation [Recovered/Resolved]
  - Off label use [Unknown]

NARRATIVE: CASE EVENT DATE: 20220225
